FAERS Safety Report 17845777 (Version 1)
Quarter: 2020Q2

REPORT INFORMATION
  Report Type: Spontaneous
  Country: CA (occurrence: CA)
  Receive Date: 20200601
  Receipt Date: 20200601
  Transmission Date: 20200714
  Serious: Yes (Other)
  Sender: FDA-Public Use
  Company Number: CA-TEVA-2020-CA-1241854

PATIENT
  Age: 46 Year
  Sex: Female

DRUGS (7)
  1. TENOFOVIR [Concomitant]
     Active Substance: TENOFOVIR
  2. PACLITAXEL. [Suspect]
     Active Substance: PACLITAXEL
     Indication: ENDOMETRIAL CANCER
     Route: 042
  3. CYTO-MATRIX VITAMIN C 1000MG [Concomitant]
     Active Substance: ASCORBIC ACID
  4. ROSUVASTATIN. [Concomitant]
     Active Substance: ROSUVASTATIN
  5. METFORMIN [Concomitant]
     Active Substance: METFORMIN HYDROCHLORIDE
  6. IRBESARTAN. [Concomitant]
     Active Substance: IRBESARTAN
  7. AMLODIPINE [Concomitant]
     Active Substance: AMLODIPINE BESYLATE

REACTIONS (5)
  - Off label use [Recovered/Resolved]
  - Chest discomfort [Recovered/Resolved]
  - Flushing [Recovered/Resolved]
  - Palpitations [Recovered/Resolved]
  - Dizziness [Recovered/Resolved]
